FAERS Safety Report 10035429 (Version 1)
Quarter: 2014Q1

REPORT INFORMATION
  Report Type: Spontaneous
  Country: US (occurrence: None)
  Receive Date: 20140306
  Receipt Date: 20140306
  Transmission Date: 20141002
  Serious: Yes (Hospitalization, Other)
  Sender: FDA-Public Use
  Company Number: 163-21880-13011389

PATIENT
  Age: 73 Year
  Sex: Female
  Weight: 83.01 kg

DRUGS (1)
  1. REVLIMID [Suspect]
     Indication: PLASMA CELL MYELOMA
     Dosage: 25 MG, 4 IN 1 WK, PO, TEMPORARILY INTERRUPTED
     Route: 048
     Dates: start: 20090915

REACTIONS (3)
  - Cellulitis [None]
  - Sepsis [None]
  - Pneumonia [None]
